FAERS Safety Report 10585394 (Version 1)
Quarter: 2014Q4

REPORT INFORMATION
  Report Type: Spontaneous
  Country: ES (occurrence: None)
  Receive Date: 20141113
  Receipt Date: 20141113
  Transmission Date: 20150529
  Serious: Yes (Hospitalization, Other)
  Sender: FDA-Public Use
  Company Number: ES-ZYDUS-005426

PATIENT
  Age: 78 Year
  Sex: Female

DRUGS (2)
  1. AMIODARONE (AMIODARONE) [Suspect]
     Active Substance: AMIODARONE
  2. RANOLAZINE [Suspect]
     Active Substance: RANOLAZINE

REACTIONS (14)
  - Extrasystoles [None]
  - Electrocardiogram QT prolonged [None]
  - Angina pectoris [None]
  - Mitral valve incompetence [None]
  - Torsade de pointes [None]
  - Drug interaction [None]
  - Dyspnoea [None]
  - Orthopnoea [None]
  - Nodal rhythm [None]
  - Left ventricular hypertrophy [None]
  - Ventricular tachycardia [None]
  - Atrial fibrillation [None]
  - Ventricular hypokinesia [None]
  - Ventricular extrasystoles [None]
